FAERS Safety Report 4576608-X (Version None)
Quarter: 2005Q1

REPORT INFORMATION
  Report Type: 
  Country: None (occurrence: None)
  Receive Date: 20050119
  Receipt Date: 20031222
  Transmission Date: 20050727
  Serious: Yes (Other)
  Sender: FDA-Public Use
  Company Number: 354590

PATIENT
  Age: 13 Year
  Sex: Female
  Weight: 47.2 kg

DRUGS (1)
  1. VERSED [Suspect]
     Indication: SEDATION
     Dosage: 1 DOR FORM   1 PER ONE DOSE   INTRAVENOUS
     Route: 042
     Dates: start: 20031023, end: 20031023

REACTIONS (1)
  - SWELLING FACE [None]
